FAERS Safety Report 12585163 (Version 4)
Quarter: 2017Q3

REPORT INFORMATION
  Report Type: Spontaneous
  Country: IT (occurrence: IT)
  Receive Date: 20160723
  Receipt Date: 20170814
  Transmission Date: 20171127
  Serious: Yes (Other)
  Sender: FDA-Public Use
  Company Number: IT-ACCORD-041160

PATIENT
  Age: 68 Year
  Sex: Male
  Weight: 83 kg

DRUGS (7)
  1. CAPECITABINE ACCORD [Suspect]
     Active Substance: CAPECITABINE
     Indication: ADENOCARCINOMA OF COLON
     Dosage: THE PATIENT UNDERWENT THE FIRST CYCLE XELOX
     Route: 048
     Dates: start: 20160321
  2. SIMVASTATIN. [Suspect]
     Active Substance: SIMVASTATIN
     Indication: HYPERCHOLESTEROLAEMIA
  3. LOSARTAN/LOSARTAN POTASSIUM [Concomitant]
     Indication: ESSENTIAL HYPERTENSION
  4. DUTASTERIDE. [Concomitant]
     Active Substance: DUTASTERIDE
  5. ALFUZOSIN/ALFUZOSIN HYDROCHLORIDE [Concomitant]
  6. OXALIPLATIN. [Suspect]
     Active Substance: OXALIPLATIN
     Indication: ADENOCARCINOMA OF COLON
     Dosage: THE PATIENT UNDERWENT THE FIRST CYCLE XELOX
     Route: 042
     Dates: start: 20160321
  7. MOVICOL [Concomitant]
     Active Substance: POLYETHYLENE GLYCOL 3350\POTASSIUM CHLORIDE\SODIUM BICARBONATE\SODIUM CHLORIDE
     Dosage: STRENGTH: 13.8 MG

REACTIONS (3)
  - Actinic keratosis [Not Recovered/Not Resolved]
  - Thrombocytopenia [Recovering/Resolving]
  - Constipation [Recovering/Resolving]

NARRATIVE: CASE EVENT DATE: 20160325
